FAERS Safety Report 6208672-6 (Version None)
Quarter: 2009Q2

REPORT INFORMATION
  Report Type: 
  Country: None (occurrence: None)
  Receive Date: 20090529
  Receipt Date: 20090526
  Transmission Date: 20091009
  Serious: Yes (Hospitalization)
  Sender: FDA-Public Use
  Company Number: FR-WYE-G03738709

PATIENT
  Age: 8 Year
  Sex: Male
  Weight: 23 kg

DRUGS (12)
  1. TAZOCILLINE [Suspect]
     Indication: PSEUDOMONAS INFECTION
     Route: 042
     Dates: start: 20090318, end: 20090330
  2. CREON [Concomitant]
     Dosage: UNKNOWN
  3. OMEPRAZOLE [Concomitant]
     Dosage: UNKNOWN
  4. TOCO [Concomitant]
     Dosage: UNKNOWN
  5. SELENIUM [Concomitant]
     Dosage: UNKNOWN
  6. VITAMIN A [Concomitant]
     Dosage: UNKNOWN
  7. BETACAROTENE [Concomitant]
     Dosage: UNKNOWN
  8. ASCORBIC ACID [Concomitant]
     Dosage: UNKNOWN
  9. ZINC [Concomitant]
     Dosage: UNKNOWN
  10. TOCOPHERYL ACETATE [Concomitant]
     Dosage: UNKNOWN
  11. NEBCIN [Suspect]
     Indication: PSEUDOMONAS INFECTION
     Dosage: UNKNOWN
     Route: 042
     Dates: start: 20090318, end: 20090330
  12. DELURSAN [Concomitant]
     Dosage: UNKNOWN

REACTIONS (4)
  - ARTHRALGIA [None]
  - GENERAL PHYSICAL HEALTH DETERIORATION [None]
  - RASH MORBILLIFORM [None]
  - VIRAL INFECTION [None]
